FAERS Safety Report 8172257-5 (Version None)
Quarter: 2012Q1

REPORT INFORMATION
  Report Type: 
  Country: None (occurrence: None)
  Receive Date: 20120229
  Receipt Date: 20120221
  Transmission Date: 20120608
  Serious: Yes (Hospitalization, Other)
  Sender: FDA-Public Use
  Company Number: US-BIOGENIDEC-2011BI046645

PATIENT
  Age: 61 Year
  Sex: Male

DRUGS (3)
  1. AVONEX [Suspect]
     Route: 030
     Dates: start: 19990501, end: 20030801
  2. AVONEX [Suspect]
     Indication: MULTIPLE SCLEROSIS
  3. AVONEX [Suspect]
     Route: 030
     Dates: start: 20030801

REACTIONS (3)
  - PROSTATE CANCER [None]
  - AORTIC ANEURYSM [None]
  - AORTIC THROMBOSIS [None]
